FAERS Safety Report 20864035 (Version 4)
Quarter: 2022Q2

REPORT INFORMATION
  Report Type: Spontaneous
  Country: AR (occurrence: AR)
  Receive Date: 20220523
  Receipt Date: 20220624
  Transmission Date: 20220721
  Serious: Yes (Death, Hospitalization)
  Sender: FDA-Public Use
  Company Number: AR-SA-SAC20220422001350

PATIENT

DRUGS (5)
  1. LARONIDASE [Suspect]
     Active Substance: LARONIDASE
     Indication: Mucopolysaccharidosis I
     Dosage: 11.6 MG, QW (0.58 MG/KG QW OR 5 VIAL)
     Route: 042
     Dates: start: 20201117
  2. LARONIDASE [Suspect]
     Active Substance: LARONIDASE
     Dosage: 11.6 MG, QW (0.58 MG/KG QW OR 5 VIAL)
     Route: 042
  3. LARONIDASE [Suspect]
     Active Substance: LARONIDASE
     Dosage: 11.6 MG, QW (0.58 MG/KG QW OR 5 VIAL)
     Route: 042
     Dates: start: 20201111
  4. DIPHENHYDRAMINE [Concomitant]
     Active Substance: DIPHENHYDRAMINE
     Indication: Product used for unknown indication
     Dosage: 1,2ML
  5. METAMIZOLE [Concomitant]
     Active Substance: METAMIZOLE
     Indication: Product used for unknown indication
     Dosage: 1 ML

REACTIONS (7)
  - Respiratory disorder [Fatal]
  - Bronchial disorder [Fatal]
  - Increased bronchial secretion [Unknown]
  - Pyrexia [Unknown]
  - Oropharyngeal pain [Not Recovered/Not Resolved]
  - Oropharyngeal discomfort [Unknown]
  - Malaise [Unknown]

NARRATIVE: CASE EVENT DATE: 20220101
